FAERS Safety Report 7665188-8 (Version None)
Quarter: 2011Q3

REPORT INFORMATION
  Report Type: 
  Country: None (occurrence: None)
  Receive Date: 20110806
  Receipt Date: 20110503
  Transmission Date: 20111222
  Serious: No
  Sender: FDA-Public Use
  Company Number: US-ABBOTT-11P-163-0723045-00

PATIENT
  Sex: Female
  Weight: 55.842 kg

DRUGS (3)
  1. NIASPAN [Suspect]
     Indication: BLOOD CHOLESTEROL INCREASED
     Dates: start: 20110429, end: 20110502
  2. VD [Concomitant]
     Indication: PRODUCT USED FOR UNKNOWN INDICATION
  3. ASPIRIN [Concomitant]
     Indication: PRODUCT USED FOR UNKNOWN INDICATION

REACTIONS (5)
  - OROPHARYNGEAL PAIN [None]
  - DYSARTHRIA [None]
  - BLINDNESS [None]
  - LOSS OF CONSCIOUSNESS [None]
  - FLUSHING [None]
